FAERS Safety Report 6870851-2 (Version None)
Quarter: 2010Q3

REPORT INFORMATION
  Report Type: 
  Country: None (occurrence: None)
  Receive Date: 20100721
  Receipt Date: 20100708
  Transmission Date: 20110219
  Serious: Yes (Death, Other)
  Sender: FDA-Public Use
  Company Number: 2010085105

PATIENT
  Age: 74 Year
  Sex: Female

DRUGS (1)
  1. FRAGMIN [Suspect]
     Dosage: 5000, 1/XDAY

REACTIONS (3)
  - BLOOD BILIRUBIN INCREASED [None]
  - DIALYSIS [None]
  - RENAL IMPAIRMENT [None]
